FAERS Safety Report 21083596 (Version 5)
Quarter: 2022Q3

REPORT INFORMATION
  Report Type: Report from Study
  Country: DE (occurrence: DE)
  Receive Date: 20220714
  Receipt Date: 20220804
  Transmission Date: 20221027
  Serious: Yes (Hospitalization)
  Sender: FDA-Public Use
  Company Number: DE-AMGEN-DEUCT2022114718

PATIENT
  Age: 17 Year
  Sex: Female
  Weight: 54.1 kg

DRUGS (7)
  1. ERENUMAB [Suspect]
     Active Substance: ERENUMAB
     Indication: Migraine
     Dosage: 140 MILLIGRAM
     Route: 058
     Dates: start: 20220111, end: 20220531
  2. DIMENHYDRINATE [Concomitant]
     Active Substance: DIMENHYDRINATE
     Dosage: 50 MILLIGRAM
     Route: 048
     Dates: start: 20110101
  3. RIZATRIPTAN [Concomitant]
     Active Substance: RIZATRIPTAN
     Dosage: 10 MILLIGRAM
     Route: 048
     Dates: start: 20110101
  4. ZOMIG [Concomitant]
     Active Substance: ZOLMITRIPTAN
     Dosage: 5 MILLIGRAM
     Route: 045
     Dates: start: 20110101
  5. SUMATRIPTAN [Concomitant]
     Active Substance: SUMATRIPTAN
     Dosage: 50 MILLIGRAM
     Route: 048
     Dates: start: 20160101
  6. ELETRIPTAN [Concomitant]
     Active Substance: ELETRIPTAN
     Dosage: 40 MILLIGRAM
     Route: 048
     Dates: start: 20211105
  7. THOMAPYRIN TENSION DUO [Concomitant]
     Dosage: 1 UNK
     Route: 048
     Dates: start: 20220308

REACTIONS (1)
  - Epilepsy [Recovered/Resolved]

NARRATIVE: CASE EVENT DATE: 20220704
